FAERS Safety Report 7470759-8 (Version None)
Quarter: 2011Q2

REPORT INFORMATION
  Report Type: 
  Country: None (occurrence: None)
  Receive Date: 20110510
  Receipt Date: 20110509
  Transmission Date: 20111010
  Serious: Yes (Life-Threatening, Hospitalization, Other)
  Sender: FDA-Public Use
  Company Number: PHHO2011GB06766

PATIENT
  Sex: Female

DRUGS (14)
  1. POTASSIUM [Concomitant]
  2. ONDANSETRON [Concomitant]
  3. CETIRIZINE HCL [Concomitant]
  4. ACYCLOVIR [Concomitant]
  5. RANITIDINE [Concomitant]
  6. MAGNESIUM GLYCEROPHOSPHATE [Concomitant]
  7. PREDNISOLONE [Concomitant]
  8. BUSCOPAN [Concomitant]
  9. MORPHINE [Concomitant]
  10. GLEEVEC [Suspect]
     Indication: ACUTE LYMPHOCYTIC LEUKAEMIA
     Dosage: UNK
     Route: 048
     Dates: end: 20110415
  11. GELCLAIR [Concomitant]
  12. CYTARABINE [Concomitant]
  13. SUCRALFATE [Concomitant]
  14. TPN [Concomitant]

REACTIONS (3)
  - SEPTIC SHOCK [None]
  - MUCOSAL INFLAMMATION [None]
  - NEUTROPENIA [None]
